FAERS Safety Report 23296923 (Version 1)
Quarter: 2023Q4

REPORT INFORMATION
  Report Type: Spontaneous
  Country: US (occurrence: US)
  Receive Date: 20231214
  Receipt Date: 20231214
  Transmission Date: 20240110
  Serious: No
  Sender: FDA-Public Use
  Company Number: US-SA-SAC20231208001284

PATIENT
  Sex: Male

DRUGS (4)
  1. DUPIXENT [Suspect]
     Active Substance: DUPILUMAB
     Indication: Hypereosinophilic syndrome
     Dosage: 300 MG, QW
     Route: 058
  2. CALCIUM [Concomitant]
     Active Substance: CALCIUM
  3. PREDNISONE [Concomitant]
     Active Substance: PREDNISONE
  4. VITAMIN D NOS [Concomitant]
     Active Substance: VITAMIN D NOS

REACTIONS (1)
  - Drug ineffective for unapproved indication [Unknown]
